FAERS Safety Report 5919527-6 (Version None)
Quarter: 2008Q4

REPORT INFORMATION
  Report Type: 
  Country: None (occurrence: None)
  Receive Date: 20081015
  Receipt Date: 20081013
  Transmission Date: 20090506
  Serious: Yes (Death)
  Sender: FDA-Public Use
  Company Number: BR-SANOFI-SYNTHELABO-F01200801572

PATIENT
  Sex: Female

DRUGS (3)
  1. FLUOROURACIL [Suspect]
     Dosage: 3000 MG
     Route: 042
  2. BEVACIZUMAB [Suspect]
     Route: 042
  3. OXALIPLATIN [Suspect]
     Indication: COLORECTAL CANCER METASTATIC
     Dosage: 160 MG

REACTIONS (3)
  - BONE MARROW FAILURE [None]
  - MUCOSAL INFLAMMATION [None]
  - NEUTROPENIA [None]
